FAERS Safety Report 7044547-0 (Version None)
Quarter: 2010Q4

REPORT INFORMATION
  Report Type: 
  Country: None (occurrence: None)
  Receive Date: 20101014
  Receipt Date: 20101005
  Transmission Date: 20110411
  Serious: Yes (Other)
  Sender: FDA-Public Use
  Company Number: GB-US-EMD SERONO, INC.-7003753

PATIENT
  Sex: Female

DRUGS (1)
  1. REBIF [Suspect]
     Indication: PRODUCT USED FOR UNKNOWN INDICATION
     Dates: start: 20100402, end: 20100801

REACTIONS (5)
  - ANGINA PECTORIS [None]
  - ANXIETY [None]
  - INJECTION SITE REACTION [None]
  - INSOMNIA [None]
  - PALPITATIONS [None]
